FAERS Safety Report 21465499 (Version 3)
Quarter: 2022Q4

REPORT INFORMATION
  Report Type: Spontaneous
  Country: US (occurrence: US)
  Receive Date: 20221017
  Receipt Date: 20221128
  Transmission Date: 20230113
  Serious: No
  Sender: FDA-Public Use
  Company Number: US-PFIZER INC-PV202200082574

PATIENT
  Age: 54 Year
  Sex: Female

DRUGS (1)
  1. IBRANCE [Suspect]
     Active Substance: PALBOCICLIB
     Dosage: 125 MG
     Dates: end: 2022

REACTIONS (4)
  - Anaemia [Recovering/Resolving]
  - Abdominal discomfort [Recovering/Resolving]
  - Alopecia [Recovering/Resolving]
  - Dyspepsia [Recovering/Resolving]
